FAERS Safety Report 11383020 (Version 2)
Quarter: 2016Q2

REPORT INFORMATION
  Report Type: Spontaneous
  Country: IT (occurrence: IT)
  Receive Date: 20150814
  Receipt Date: 20160426
  Transmission Date: 20160815
  Serious: Yes (Hospitalization)
  Sender: FDA-Public Use
  Company Number: IT-FRESENIUS KABI-FK201501394

PATIENT
  Age: 63 Year
  Sex: Male
  Weight: 67 kg

DRUGS (19)
  1. IRINOTECAN 20 MG/ML CONCENTRATE FOR SOLUTION FOR INFUSION [Suspect]
     Active Substance: IRINOTECAN
     Indication: ADENOCARCINOMA OF COLON
     Route: 042
     Dates: start: 20150105, end: 20150119
  2. IRINOTECAN 20 MG/ML CONCENTRATE FOR SOLUTION FOR INFUSION [Suspect]
     Active Substance: IRINOTECAN
     Route: 042
     Dates: start: 20150218, end: 20150326
  3. POTASSIUM [Concomitant]
     Active Substance: POTASSIUM
     Dates: start: 20150305
  4. RANITIDINE. [Concomitant]
     Active Substance: RANITIDINE
     Dates: start: 20150202, end: 20150204
  5. ZALTRAP [Suspect]
     Active Substance: ZIV-AFLIBERCEPT
     Indication: ADENOCARCINOMA OF COLON
     Route: 042
     Dates: start: 20150105, end: 20150119
  6. INDOMETHACIN. [Concomitant]
     Active Substance: INDOMETHACIN
     Route: 065
     Dates: start: 20150107, end: 20150217
  7. FLUOROURACILE TEVA [Suspect]
     Active Substance: FLUOROURACIL
     Route: 041
     Dates: start: 20150105, end: 20150326
  8. TARGIN [Concomitant]
     Active Substance: NALOXONE HYDROCHLORIDE\OXYCODONE HYDROCHLORIDE
     Route: 065
     Dates: start: 20150107, end: 20150204
  9. FENTANYL. [Concomitant]
     Active Substance: FENTANYL
     Route: 065
     Dates: start: 20150107, end: 20150217
  10. PARACETAMOL [Concomitant]
     Active Substance: ACETAMINOPHEN
     Route: 065
     Dates: start: 20150109, end: 20150217
  11. OCTREOTIDE. [Concomitant]
     Active Substance: OCTREOTIDE
     Dates: start: 20150202, end: 20150204
  12. CALCIO LEVOFOLINATO TEVA [Suspect]
     Active Substance: LEUCOVORIN CALCIUM
     Indication: ADENOCARCINOMA OF COLON
     Route: 042
     Dates: start: 20150105, end: 20150119
  13. CALCIO LEVOFOLINATO TEVA [Suspect]
     Active Substance: LEUCOVORIN CALCIUM
     Route: 065
     Dates: start: 20150105, end: 20150326
  14. FLUOROURACILE TEVA [Suspect]
     Active Substance: FLUOROURACIL
     Indication: ADENOCARCINOMA OF COLON
     Route: 042
     Dates: start: 20150105, end: 20150119
  15. DENOSUMAB [Concomitant]
     Active Substance: DENOSUMAB
     Dates: start: 20150220
  16. PREGABALIN. [Concomitant]
     Active Substance: PREGABALIN
     Route: 065
     Dates: start: 20150107, end: 20150204
  17. APREPITANT. [Concomitant]
     Active Substance: APREPITANT
     Dates: start: 20150415
  18. G-CSF [Concomitant]
     Active Substance: GRANULOCYTE COLONY-STIMULATING FACTOR NOS
     Dates: start: 20150109, end: 20150123
  19. FENTANYL. [Concomitant]
     Active Substance: FENTANYL
     Dates: start: 20150119

REACTIONS (5)
  - Asthenia [Recovered/Resolved]
  - Nausea [Unknown]
  - Diarrhoea [Recovered/Resolved]
  - Vomiting [Recovered/Resolved]
  - Epididymitis [Recovered/Resolved]

NARRATIVE: CASE EVENT DATE: 20150202
